FAERS Safety Report 16842671 (Version 1)
Quarter: 2019Q3

REPORT INFORMATION
  Report Type: Spontaneous
  Country: CA (occurrence: CA)
  Receive Date: 20190924
  Receipt Date: 20190924
  Transmission Date: 20191005
  Serious: Yes (Hospitalization)
  Sender: FDA-Public Use
  Company Number: CA-TEVA-2019-CA-1113154

PATIENT
  Age: 17 Year
  Sex: Female

DRUGS (8)
  1. CIPRALEX [Suspect]
     Active Substance: ESCITALOPRAM OXALATE
  2. CIPRALEX [Suspect]
     Active Substance: ESCITALOPRAM OXALATE
  3. EFFEXOR XR [Suspect]
     Active Substance: VENLAFAXINE HYDROCHLORIDE
  4. SEROQUEL [Concomitant]
     Active Substance: QUETIAPINE FUMARATE
  5. VENLAFAXINE HYDROCHLORIDE. [Suspect]
     Active Substance: VENLAFAXINE HYDROCHLORIDE
  6. QUETIAPINE. [Concomitant]
     Active Substance: QUETIAPINE
  7. ESCITALOPRAM [Suspect]
     Active Substance: ESCITALOPRAM OXALATE
  8. EFFEXOR XR [Suspect]
     Active Substance: VENLAFAXINE HYDROCHLORIDE

REACTIONS (3)
  - Drug ineffective [Unknown]
  - Suicidal ideation [Unknown]
  - Incorrect dose administered [Unknown]
